FAERS Safety Report 4551747-8 (Version None)
Quarter: 2005Q1

REPORT INFORMATION
  Report Type: 
  Country: None (occurrence: None)
  Receive Date: 20050111
  Receipt Date: 20041229
  Transmission Date: 20050727
  Serious: Yes (Death)
  Sender: FDA-Public Use
  Company Number: 2004AP02865

PATIENT
  Age: 66 Year
  Sex: Female

DRUGS (1)
  1. ACCOLATE [Suspect]
     Dosage: 40 MG DAILY PO
     Route: 048
     Dates: start: 20010929

REACTIONS (9)
  - BACTERAEMIA [None]
  - DISSEMINATED INTRAVASCULAR COAGULATION [None]
  - HEPATIC FUNCTION ABNORMAL [None]
  - INJURY [None]
  - LUNG DISORDER [None]
  - PNEUMONIA [None]
  - POST PROCEDURAL COMPLICATION [None]
  - SEPTIC SHOCK [None]
  - SHOCK [None]
